FAERS Safety Report 7686729-0 (Version None)
Quarter: 2011Q3

REPORT INFORMATION
  Report Type: 
  Country: None (occurrence: None)
  Receive Date: 20110816
  Receipt Date: 20110209
  Transmission Date: 20111222
  Serious: No
  Sender: FDA-Public Use
  Company Number: US-MYLANLABS-2010S1021884

PATIENT
  Age: 49 Year
  Sex: Female

DRUGS (4)
  1. LISINOPRIL AND HYDROCHLOROTHIAZIDE [Suspect]
     Route: 048
     Dates: start: 20090301
  2. FISH OIL [Concomitant]
  3. LISINOPRIL AND HYDROCHLOROTHIAZIDE [Suspect]
     Indication: BLOOD PRESSURE INCREASED
     Route: 048
     Dates: start: 20090301
  4. MULTI-VITAMINS [Concomitant]

REACTIONS (8)
  - INSOMNIA [None]
  - PARKINSONISM [None]
  - BACK PAIN [None]
  - METAL POISONING [None]
  - ASTHENIA [None]
  - NECK PAIN [None]
  - CONFUSIONAL STATE [None]
  - ARTHRALGIA [None]
